FAERS Safety Report 6105754-4 (Version None)
Quarter: 2009Q1

REPORT INFORMATION
  Report Type: 
  Country: None (occurrence: None)
  Receive Date: 20090306
  Receipt Date: 20090223
  Transmission Date: 20090719
  Serious: Yes (Death)
  Sender: FDA-Public Use
  Company Number: GB-ELI_LILLY_AND_COMPANY-GB200805004208

PATIENT
  Sex: Female
  Weight: 45.2 kg

DRUGS (15)
  1. TERIPARATIDE [Suspect]
     Indication: OSTEOPOROSIS
     Dosage: 20 UG, DAILY (1/D)
     Route: 058
     Dates: start: 20061101, end: 20080501
  2. PREDNISOLONE [Concomitant]
     Indication: RHEUMATOID ARTHRITIS
     Dosage: 5 MG, UNKNOWN
     Route: 065
  3. ATORVASTATIN [Concomitant]
     Dosage: UNK, UNKNOWN
     Route: 065
  4. FUROSEMIDE [Concomitant]
     Indication: CARDIAC FAILURE
     Dosage: 80 MG, UNKNOWN
     Route: 048
  5. FUROSEMIDE [Concomitant]
     Dosage: 40 MG, UNK
     Route: 048
  6. TRAMADOL HCL [Concomitant]
     Dosage: UNK, UNKNOWN
     Route: 065
  7. LANSOPRAZOLE [Concomitant]
     Dosage: UNK, UNKNOWN
     Route: 066
  8. ADCAL-D3 [Concomitant]
     Dosage: UNK, UNKNOWN
     Route: 065
  9. ATENOLOL [Concomitant]
     Dosage: UNK, UNKNOWN
     Route: 065
  10. AZATHIOPRINE [Concomitant]
     Indication: RHEUMATOID ARTHRITIS
     Dosage: 50 MG, UNK
     Route: 048
  11. ACRINOL [Concomitant]
     Dosage: 35 MG, WEEKLY (1/W)
     Route: 048
  12. CALCIUM [Concomitant]
  13. VITAMIN D [Concomitant]
  14. SIMVASTATIN [Concomitant]
     Dosage: 20 MG, UNK
     Route: 048
  15. RAMIPRIL [Concomitant]
     Indication: HYPERTENSION
     Dosage: 50 MG, UNKNOWN
     Route: 048

REACTIONS (7)
  - DIZZINESS [None]
  - FATIGUE [None]
  - FEELING ABNORMAL [None]
  - GASTROINTESTINAL NECROSIS [None]
  - INTESTINAL ISCHAEMIA [None]
  - POSTOPERATIVE ADHESION [None]
  - SEPSIS [None]
